FAERS Safety Report 10131551 (Version 1)
Quarter: 2014Q2

REPORT INFORMATION
  Report Type: Spontaneous
  Country: US (occurrence: US)
  Receive Date: 20140428
  Receipt Date: 20140428
  Transmission Date: 20141212
  Serious: Yes (Disabling)
  Sender: FDA-Public Use
  Company Number: US-009507513-1404USA010597

PATIENT
  Sex: 0

DRUGS (6)
  1. COZAAR [Suspect]
     Dosage: UNK
     Route: 048
  2. PRINIVIL [Suspect]
     Dosage: UNK
     Route: 048
  3. AMLODIPINE [Suspect]
     Dosage: UNK
  4. METOPROLOL [Suspect]
     Dosage: UNK
  5. IRBESARTAN [Suspect]
     Dosage: UNK
  6. VALSARTAN [Suspect]
     Dosage: UNK

REACTIONS (3)
  - Fatigue [Unknown]
  - Insomnia [Unknown]
  - Hypotonic urinary bladder [Unknown]
